FAERS Safety Report 17116296 (Version 4)
Quarter: 2020Q1

REPORT INFORMATION
  Report Type: Spontaneous
  Country: JP (occurrence: JP)
  Receive Date: 20191205
  Receipt Date: 20200228
  Transmission Date: 20200409
  Serious: Yes (Other)
  Sender: FDA-Public Use
  Company Number: JP-ELI_LILLY_AND_COMPANY-JP201912001477

PATIENT
  Age: 55 Year
  Sex: Male

DRUGS (5)
  1. TARLIGE [Suspect]
     Active Substance: MIROGABALIN BESYLATE
     Indication: LUMBAR SPINAL STENOSIS
     Dosage: 5 MG, BID
     Route: 048
     Dates: start: 20191119, end: 20191125
  2. LIMAPROST ALFADEX [Concomitant]
     Active Substance: LIMAPROST
     Indication: LUMBAR SPINAL STENOSIS
     Dosage: 5 UG, TID
     Route: 048
     Dates: start: 20190313, end: 20191125
  3. DULOXETINE HYDROCHLORIDE. [Suspect]
     Active Substance: DULOXETINE HYDROCHLORIDE
     Indication: BACK PAIN
     Dosage: 20 MG, DAILY
     Route: 048
     Dates: start: 20190921, end: 20191125
  4. DULOXETINE HYDROCHLORIDE. [Suspect]
     Active Substance: DULOXETINE HYDROCHLORIDE
     Indication: OSTEOARTHRITIS
  5. LORCAM [LORNOXICAM] [Concomitant]
     Indication: OSTEOARTHRITIS
     Dosage: 4 MG, BID
     Route: 048
     Dates: start: 20191119, end: 20191125

REACTIONS (2)
  - Insomnia [Unknown]
  - Loss of consciousness [Recovered/Resolved]

NARRATIVE: CASE EVENT DATE: 201910
